FAERS Safety Report 13093078 (Version 1)
Quarter: 2017Q1

REPORT INFORMATION
  Report Type: Spontaneous
  Country: US (occurrence: US)
  Receive Date: 20170105
  Receipt Date: 20170105
  Transmission Date: 20170428
  Serious: Yes (Death, Life-Threatening, Hospitalization)
  Sender: FDA-Public Use
  Company Number: None

PATIENT
  Age: 72 Year
  Sex: Male
  Weight: 92.5 kg

DRUGS (1)
  1. RITUXIMAB [Suspect]
     Active Substance: RITUXIMAB
     Indication: CHRONIC LYMPHOCYTIC LEUKAEMIA
     Route: 042
     Dates: start: 20120228, end: 20160816

REACTIONS (6)
  - Hypotension [None]
  - Respiratory depression [None]
  - Hepatitis B [None]
  - Blood urea increased [None]
  - Confusional state [None]
  - Blood creatinine increased [None]

NARRATIVE: CASE EVENT DATE: 20161105
